FAERS Safety Report 22798552 (Version 3)
Quarter: 2023Q4

REPORT INFORMATION
  Report Type: Spontaneous
  Country: US (occurrence: US)
  Receive Date: 20230808
  Receipt Date: 20231106
  Transmission Date: 20240110
  Serious: Yes (Other)
  Sender: FDA-Public Use
  Company Number: US-PFIZER INC-202300062519

PATIENT
  Age: 70 Year
  Sex: Male
  Weight: 117.48 kg

DRUGS (20)
  1. SOMAVERT [Suspect]
     Active Substance: PEGVISOMANT
     Indication: Acromegaly
     Dosage: 30 MG, 1X/DAY (30MG BY INJECTION ONCE DAILY)
     Route: 058
     Dates: start: 20170616
  2. SOMAVERT [Suspect]
     Active Substance: PEGVISOMANT
     Indication: Carney complex
     Dosage: 30 MG, ALTERNATE DAY
     Dates: start: 20230201
  3. SOMAVERT [Suspect]
     Active Substance: PEGVISOMANT
     Indication: Gigantism
  4. ACIPHEX SPRINKLE [Concomitant]
     Active Substance: RABEPRAZOLE SODIUM
     Dosage: 20 MG
  5. AMITRIPTYLINE [Concomitant]
     Active Substance: AMITRIPTYLINE
     Dosage: 10 MG
  6. MOMETASONE FUROATE [Concomitant]
     Active Substance: MOMETASONE FUROATE
     Dosage: 0.05%
  7. FLOVENT HFA [Concomitant]
     Active Substance: FLUTICASONE PROPIONATE
     Dosage: 110 UG
  8. LINZESS [Concomitant]
     Active Substance: LINACLOTIDE
     Dosage: 145 UG
  9. HYDROCHLOROTHIAZIDE\LOSARTAN [Concomitant]
     Active Substance: HYDROCHLOROTHIAZIDE\LOSARTAN
     Dosage: 100-12.5
  10. MECLIZINE [Concomitant]
     Active Substance: MECLIZINE HYDROCHLORIDE
     Dosage: 25 MG
  11. METFORMIN HYDROCHLORIDE [Concomitant]
     Active Substance: METFORMIN HYDROCHLORIDE
     Dosage: 750 MG
  12. METOPROLOL [Concomitant]
     Active Substance: METOPROLOL
     Dosage: 50 MG
  13. POTASSIUM [Concomitant]
     Active Substance: POTASSIUM
     Dosage: 99 MG
  14. ROSUVASTATIN CALCIUM [Concomitant]
     Active Substance: ROSUVASTATIN CALCIUM
     Dosage: 20 MG
  15. SPIRONOLACTONE [Concomitant]
     Active Substance: SPIRONOLACTONE
     Dosage: 25 MG
  16. TAMSULOSIN [Concomitant]
     Active Substance: TAMSULOSIN
     Dosage: 0.4 MG
  17. VITAMIN D NOS [Concomitant]
     Active Substance: VITAMIN D NOS
     Dosage: 5000 IU
  18. VITAMIN D3 [Concomitant]
     Active Substance: CHOLECALCIFEROL
     Dosage: 2000 IU
  19. XOPENEX HFA [Concomitant]
     Active Substance: LEVALBUTEROL TARTRATE
     Dosage: UNK
  20. VITAMINS [Concomitant]
     Active Substance: VITAMINS

REACTIONS (2)
  - Heart valve operation [Not Recovered/Not Resolved]
  - Intentional product misuse [Unknown]

NARRATIVE: CASE EVENT DATE: 20230201
